FAERS Safety Report 6782204-6 (Version None)
Quarter: 2010Q2

REPORT INFORMATION
  Report Type: 
  Country: None (occurrence: None)
  Receive Date: 20100615
  Receipt Date: 20100604
  Transmission Date: 20101027
  Serious: Yes (Other)
  Sender: FDA-Public Use
  Company Number: 2009SP002937

PATIENT
  Age: 90 Year
  Sex: Female

DRUGS (9)
  1. ALVESCO [Suspect]
     Dosage: 160 UG; QD; INHALATION
     Route: 055
     Dates: start: 20090101
  2. CEFACLOR [Suspect]
     Indication: LOWER RESPIRATORY TRACT INFECTION
     Dates: start: 20090101, end: 20090101
  3. PULMICORT [Concomitant]
  4. SEREVENT [Concomitant]
  5. CALCIUM CARBONATE [Concomitant]
  6. LORATADINE [Concomitant]
  7. EYE DROPS [Concomitant]
  8. RANITIDINE [Concomitant]
  9. ALL OTHER THERAPEUTIC PRODUCTS [Concomitant]

REACTIONS (8)
  - DRUG INTERACTION [None]
  - DYSPNOEA [None]
  - ECZEMA [None]
  - LIP SWELLING [None]
  - ORAL CANDIDIASIS [None]
  - RASH [None]
  - SKIN DISORDER [None]
  - URTICARIA [None]
